FAERS Safety Report 8480269-7 (Version None)
Quarter: 2012Q2

REPORT INFORMATION
  Report Type: 
  Country: None (occurrence: None)
  Receive Date: 20120629
  Receipt Date: 20120618
  Transmission Date: 20120825
  Serious: No
  Sender: FDA-Public Use
  Company Number: US-ASTRAZENECA-2012SE33897

PATIENT
  Age: 71 Year
  Sex: Female
  Weight: 70.3 kg

DRUGS (2)
  1. TOPROL-XL [Suspect]
     Indication: HYPERTENSION
     Route: 048
     Dates: start: 19990101
  2. HYDROCHLOROTHIAZIDE [Concomitant]

REACTIONS (5)
  - INSOMNIA [None]
  - BODY HEIGHT DECREASED [None]
  - SOMNOLENCE [None]
  - MUSCULOSKELETAL STIFFNESS [None]
  - HEADACHE [None]
